FAERS Safety Report 7634022-4 (Version None)
Quarter: 2011Q3

REPORT INFORMATION
  Report Type: 
  Country: None (occurrence: None)
  Receive Date: 20110725
  Receipt Date: 20110719
  Transmission Date: 20111222
  Serious: Yes (Death, Hospitalization, Other)
  Sender: FDA-Public Use
  Company Number: IN-PFIZER INC-2011131688

PATIENT
  Age: 40 Year
  Sex: Female

DRUGS (3)
  1. SOLU-MEDROL [Suspect]
     Indication: VASCULITIS
     Dosage: 250 MG, 2X/DAY
     Dates: start: 20101221, end: 20101223
  2. LEFLUNOMIDE [Suspect]
     Indication: THROMBOCYTOPENIA
     Dosage: 10 MG, UNK
     Dates: start: 20101023, end: 20101123
  3. SOLU-MEDROL [Suspect]
     Indication: AUTOIMMUNE HEPATITIS
     Dosage: 40 MG, 2X/DAY
     Dates: start: 20101217, end: 20101220

REACTIONS (10)
  - SEPTIC SHOCK [None]
  - PULMONARY OEDEMA [None]
  - DYSPNOEA [None]
  - MULTI-ORGAN FAILURE [None]
  - HEPATITIS [None]
  - GASTROINTESTINAL HAEMORRHAGE [None]
  - SEPSIS [None]
  - CHOLESTASIS [None]
  - HAEMORRHAGE INTRACRANIAL [None]
  - DISSEMINATED INTRAVASCULAR COAGULATION [None]
